FAERS Safety Report 9311741 (Version 1)
Quarter: 2013Q2

REPORT INFORMATION
  Report Type: Spontaneous
  Country: US (occurrence: US)
  Receive Date: 20130528
  Receipt Date: 20130528
  Transmission Date: 20140414
  Serious: Yes (Other)
  Sender: FDA-Public Use
  Company Number: US-PFIZER INC-2013161379

PATIENT
  Sex: 0

DRUGS (1)
  1. LYRICA [Suspect]
     Dosage: UNK

REACTIONS (8)
  - Fibromyalgia [Unknown]
  - Pain [Unknown]
  - Injury [Unknown]
  - Depression [Unknown]
  - Drug ineffective [Unknown]
  - Malaise [Unknown]
  - Insomnia [Unknown]
  - Influenza like illness [Unknown]
